FAERS Safety Report 10609271 (Version 2)
Quarter: 2015Q1

REPORT INFORMATION
  Report Type: Report from Study
  Country: US (occurrence: US)
  Receive Date: 20141126
  Receipt Date: 20150108
  Transmission Date: 20150720
  Serious: Yes (Other)
  Sender: FDA-Public Use
  Company Number: US-AMGEN-USASL2014091362

PATIENT
  Age: 35 Year
  Sex: Male

DRUGS (1)
  1. ENBREL [Suspect]
     Active Substance: ETANERCEPT
     Indication: ANKYLOSING SPONDYLITIS
     Dosage: 50 MG, QWK
     Route: 065
     Dates: start: 201408

REACTIONS (5)
  - Sciatica [Unknown]
  - Intervertebral disc protrusion [Recovered/Resolved]
  - Back pain [Unknown]
  - Gait disturbance [Unknown]
  - Intervertebral disc space narrowing [Unknown]

NARRATIVE: CASE EVENT DATE: 2014
